FAERS Safety Report 10064376 (Version 2)
Quarter: 2014Q2

REPORT INFORMATION
  Report Type: Report from Study
  Country: US (occurrence: US)
  Receive Date: 20140408
  Receipt Date: 20140408
  Transmission Date: 20141212
  Serious: Yes (Death)
  Sender: FDA-Public Use
  Company Number: US-ROCHE-1360397

PATIENT
  Sex: Female

DRUGS (7)
  1. ERIVEDGE [Suspect]
     Indication: BASAL CELL CARCINOMA
     Route: 048
     Dates: start: 201211
  2. PLAVIX [Concomitant]
  3. ATENOLOL [Concomitant]
  4. SYNTHROID [Concomitant]
  5. AMLODIPINE [Concomitant]
  6. NORVASC [Concomitant]
  7. SEROQUEL [Concomitant]

REACTIONS (1)
  - Death [Fatal]
